FAERS Safety Report 5022688-7 (Version None)
Quarter: 2006Q2

REPORT INFORMATION
  Report Type: 
  Country: None (occurrence: None)
  Receive Date: 20060605
  Receipt Date: 20060519
  Transmission Date: 20061013
  Serious: Yes (Hospitalization)
  Sender: FDA-Public Use
  Company Number: CA200603007095

PATIENT
  Age: 60 Year
  Sex: Male

DRUGS (2)
  1. STRATTERA [Suspect]
     Indication: DEPRESSION
     Dosage: 40 MG
     Dates: start: 20050825
  2. BUPROPION (BUPROPION) [Concomitant]

REACTIONS (2)
  - PERSECUTORY DELUSION [None]
  - PSYCHOTIC DISORDER [None]
